FAERS Safety Report 5143618-3 (Version None)
Quarter: 2006Q4

REPORT INFORMATION
  Report Type: 
  Country: None (occurrence: None)
  Receive Date: 20061103
  Receipt Date: 20061023
  Transmission Date: 20070319
  Serious: Yes (Other)
  Sender: FDA-Public Use
  Company Number: BR-JNJFOC-20061005632

PATIENT
  Age: 28 Year
  Sex: Female
  Weight: 120 kg

DRUGS (2)
  1. ORTHO EVRA [Suspect]
     Indication: CONTRACEPTION
  2. OMEPRAZOLE [Concomitant]
     Indication: GASTROINTESTINAL DISORDER THERAPY

REACTIONS (3)
  - HYPERTENSIVE CRISIS [None]
  - MEDICATION ERROR [None]
  - METRORRHAGIA [None]
